FAERS Safety Report 6848574-5 (Version None)
Quarter: 2010Q3

REPORT INFORMATION
  Report Type: 
  Country: None (occurrence: None)
  Receive Date: 20100716
  Receipt Date: 20100709
  Transmission Date: 20110219
  Serious: Yes (Hospitalization)
  Sender: FDA-Public Use
  Company Number: US-BRISTOL-MYERS SQUIBB COMPANY-14890602

PATIENT
  Age: 50 Year
  Sex: Female

DRUGS (4)
  1. ARIPIPRAZOLE [Suspect]
     Indication: SCHIZOPHRENIA
     Dosage: DOSE REDUCED TO 20MG DAILY AND FURTHER REDUCED TO 10MG DAILY
     Dates: start: 20090818, end: 20090827
  2. LORAZEPAM [Concomitant]
     Dates: start: 20090724
  3. COGENTIN [Concomitant]
     Indication: EXTRAPYRAMIDAL DISORDER
     Route: 048
     Dates: start: 20090825
  4. VYTORIN [Concomitant]

REACTIONS (1)
  - SCHIZOPHRENIA [None]
